FAERS Safety Report 9742365 (Version 2)
Quarter: 2014Q4

REPORT INFORMATION
  Report Type: Spontaneous
  Country: US (occurrence: US)
  Receive Date: 20131210
  Receipt Date: 20141002
  Transmission Date: 20150529
  Serious: Yes (Hospitalization, Other)
  Sender: FDA-Public Use
  Company Number: US-BAYER-2013-148375

PATIENT
  Age: 37 Year
  Sex: Female
  Weight: 136.51 kg

DRUGS (6)
  1. PREVACID [Concomitant]
     Active Substance: LANSOPRAZOLE
  2. MIRENA [Suspect]
     Active Substance: LEVONORGESTREL
     Indication: MENSTRUAL CYCLE MANAGEMENT
  3. EFFEXOR XR [Concomitant]
     Active Substance: VENLAFAXINE HYDROCHLORIDE
  4. MIRENA [Suspect]
     Active Substance: LEVONORGESTREL
     Indication: CONTRACEPTION
     Dosage: 20 MCG/24HR, CONT
     Route: 015
     Dates: start: 20060317, end: 20090925
  5. CELEBREX [Concomitant]
     Active Substance: CELECOXIB
  6. CEPHADYN [Concomitant]

REACTIONS (11)
  - Pelvic pain [None]
  - Uterine perforation [None]
  - Vaginal haemorrhage [None]
  - Dysmenorrhoea [None]
  - Abdominal pain lower [None]
  - Pain [None]
  - Uterine haemorrhage [None]
  - Nausea [None]
  - Vomiting [None]
  - Injury [None]
  - Emotional distress [None]

NARRATIVE: CASE EVENT DATE: 20090103
